FAERS Safety Report 26022370 (Version 1)
Quarter: 2025Q4

REPORT INFORMATION
  Report Type: Spontaneous
  Country: KR (occurrence: KR)
  Receive Date: 20251110
  Receipt Date: 20251110
  Transmission Date: 20260118
  Serious: Yes (Other)
  Sender: PFIZER
  Company Number: KR-TAKEDA-2025TUS098241

PATIENT
  Age: 43 Year
  Sex: Male

DRUGS (4)
  1. BRENTUXIMAB VEDOTIN [Suspect]
     Active Substance: BRENTUXIMAB VEDOTIN
     Indication: Hodgkin^s disease stage IV
     Dosage: UNK
     Route: 065
     Dates: start: 20250715
  2. DOXORUBICIN [Suspect]
     Active Substance: DOXORUBICIN
     Indication: Hodgkin^s disease stage IV
     Dosage: UNK
     Route: 065
     Dates: start: 20250715
  3. VINBLASTINE [Suspect]
     Active Substance: VINBLASTINE
     Indication: Hodgkin^s disease stage IV
     Dosage: UNK
     Route: 065
     Dates: start: 20250715
  4. DACARBAZINE [Suspect]
     Active Substance: DACARBAZINE
     Indication: Hodgkin^s disease stage IV
     Dosage: UNK
     Route: 065
     Dates: start: 20250715

REACTIONS (2)
  - Second primary malignancy [Unknown]
  - Diffuse large B-cell lymphoma [Unknown]
